FAERS Safety Report 17843810 (Version 2)
Quarter: 2020Q2

REPORT INFORMATION
  Report Type: Spontaneous
  Country: GB (occurrence: GB)
  Receive Date: 20200531
  Receipt Date: 20200604
  Transmission Date: 20200714
  Serious: Yes (Other)
  Sender: FDA-Public Use
  Company Number: GB-UCBSA-2020021762

PATIENT
  Age: 31 Year
  Sex: Male

DRUGS (1)
  1. KEPPRA [Suspect]
     Active Substance: LEVETIRACETAM
     Indication: EPILEPSY
     Dosage: 7.5 ML DAILY
     Route: 048

REACTIONS (5)
  - Headache [Recovered/Resolved]
  - Product quality issue [Unknown]
  - Intentional self-injury [Recovered/Resolved]
  - Head banging [Recovered/Resolved]
  - Abnormal behaviour [Recovered/Resolved]
